FAERS Safety Report 19014088 (Version 6)
Quarter: 2022Q1

REPORT INFORMATION
  Report Type: Report from Study
  Country: US (occurrence: US)
  Receive Date: 20210316
  Receipt Date: 20220106
  Transmission Date: 20220423
  Serious: No
  Sender: FDA-Public Use
  Company Number: NVSC2021US060861

PATIENT
  Sex: Female

DRUGS (1)
  1. COSENTYX [Suspect]
     Active Substance: SECUKINUMAB
     Indication: Ankylosing spondylitis
     Dosage: QW (ONCE A WEEK)
     Route: 058
     Dates: start: 202102

REACTIONS (4)
  - Peripheral swelling [Unknown]
  - Pain [Unknown]
  - Arthritis [Unknown]
  - Drug ineffective [Unknown]
